FAERS Safety Report 6118207-4 (Version None)
Quarter: 2009Q1

REPORT INFORMATION
  Report Type: 
  Country: None (occurrence: None)
  Receive Date: 20090314
  Receipt Date: 20090210
  Transmission Date: 20090719
  Serious: Yes (Other)
  Sender: FDA-Public Use
  Company Number: US-ABBOTT-09P-163-0502934-00

PATIENT
  Sex: Male

DRUGS (2)
  1. HUMIRA [Suspect]
     Indication: PSORIASIS
     Route: 058
     Dates: start: 20060601
  2. ULTRIVATE CREAM [Concomitant]
     Indication: PSORIASIS
     Route: 061

REACTIONS (1)
  - MALIGNANT MELANOMA [None]
